FAERS Safety Report 14277837 (Version 1)
Quarter: 2017Q4

REPORT INFORMATION
  Report Type: Spontaneous
  Country: NL (occurrence: NL)
  Receive Date: 20171211
  Receipt Date: 20171211
  Transmission Date: 20180321
  Serious: Yes (Hospitalization, Other)
  Sender: FDA-Public Use
  Company Number: NL-OTSUKA-DJ20083876

PATIENT

DRUGS (4)
  1. ABILIFY [Suspect]
     Active Substance: ARIPIPRAZOLE
     Route: 048
     Dates: start: 20080708
  2. CLOZAPINE. [Concomitant]
     Active Substance: CLOZAPINE
     Route: 065
  3. LITHIUM. [Concomitant]
     Active Substance: LITHIUM
  4. LITHIUM. [Concomitant]
     Active Substance: LITHIUM
     Route: 065

REACTIONS (1)
  - Pulmonary embolism [Unknown]

NARRATIVE: CASE EVENT DATE: 20080805
